FAERS Safety Report 18286008 (Version 1)
Quarter: 2020Q3

REPORT INFORMATION
  Report Type: Spontaneous
  Country: BG (occurrence: BG)
  Receive Date: 20200919
  Receipt Date: 20200919
  Transmission Date: 20201103
  Serious: Yes (Other)
  Sender: FDA-Public Use
  Company Number: BG-MICRO LABS LIMITED-ML2020-02807

PATIENT
  Age: 81 Year
  Sex: Female

DRUGS (2)
  1. DORZOLAMIDE/TIMOLOL [Suspect]
     Active Substance: DORZOLAMIDE\TIMOLOL
     Indication: EXFOLIATION GLAUCOMA
  2. TRAVOPROST. [Suspect]
     Active Substance: TRAVOPROST
     Indication: EXFOLIATION GLAUCOMA

REACTIONS (5)
  - Choroidal effusion [Recovered/Resolved]
  - Medication error [Unknown]
  - Choroidal detachment [Recovered/Resolved]
  - Visual acuity reduced [Recovered/Resolved]
  - Intraocular pressure decreased [Recovered/Resolved]
